FAERS Safety Report 6271955-8 (Version None)
Quarter: 2009Q3

REPORT INFORMATION
  Report Type: 
  Country: None (occurrence: None)
  Receive Date: 20090717
  Receipt Date: 20090707
  Transmission Date: 20100115
  Serious: Yes (Hospitalization)
  Sender: FDA-Public Use
  Company Number: US-AVENTIS-200914037EU

PATIENT
  Age: 60 Year
  Sex: Female
  Weight: 95.46 kg

DRUGS (8)
  1. ENOXAPARIN SODIUM [Suspect]
     Route: 058
     Dates: start: 20090312
  2. CYMBALTA [Concomitant]
     Dates: start: 20080101
  3. VICODIN [Concomitant]
     Dates: start: 20081201
  4. IBUPROFEN [Concomitant]
     Dates: start: 20071201, end: 20090301
  5. GLUCOSAMINE/CHONDROITIN [Concomitant]
     Dates: start: 20090311
  6. CALCIUM [Concomitant]
     Dates: start: 20090312
  7. DILAUDID [Concomitant]
     Dates: start: 20090312
  8. FENTANYL-100 [Concomitant]
     Dates: start: 20090312

REACTIONS (1)
  - HAEMOGLOBIN DECREASED [None]
